FAERS Safety Report 13295861 (Version 3)
Quarter: 2018Q2

REPORT INFORMATION
  Report Type: Report from Study
  Country: US (occurrence: US)
  Receive Date: 20170303
  Receipt Date: 20180409
  Transmission Date: 20180711
  Serious: Yes (Other)
  Sender: FDA-Public Use
  Company Number: US-JAZZ-2017-US-000248

PATIENT
  Sex: Female

DRUGS (39)
  1. XYREM [Suspect]
     Active Substance: SODIUM OXYBATE
     Indication: SLEEP DISORDER
     Dosage: 2.25 G, BID
     Route: 048
     Dates: start: 201312, end: 2014
  2. NORVASC [Concomitant]
     Active Substance: AMLODIPINE BESYLATE
  3. LIOTHYRONINE SOD. [Concomitant]
  4. OMEGA 3 FISH OILS [Concomitant]
     Active Substance: OMEGA-3 FATTY ACIDS
  5. ORPHENADRINE [Concomitant]
     Active Substance: ORPHENADRINE
  6. PROAIR HFA [Concomitant]
     Active Substance: ALBUTEROL SULFATE
  7. DICLOFENAC SODIUM. [Concomitant]
     Active Substance: DICLOFENAC SODIUM
  8. SYNTHROID [Concomitant]
     Active Substance: LEVOTHYROXINE SODIUM
  9. ADVAIR HFA [Concomitant]
     Active Substance: FLUTICASONE PROPIONATE\SALMETEROL XINAFOATE
  10. XYREM [Suspect]
     Active Substance: SODIUM OXYBATE
     Dosage: 2 G, BID
     Route: 048
     Dates: start: 201604
  11. HUMIRA [Concomitant]
     Active Substance: ADALIMUMAB
  12. FLUCONAZOLE. [Concomitant]
     Active Substance: FLUCONAZOLE
  13. AZITHROMYCIN ANHYDROUS. [Concomitant]
     Active Substance: AZITHROMYCIN ANHYDROUS
  14. CHLORAL HYDRATE [Concomitant]
     Active Substance: CHLORAL HYDRATE
  15. LIPITOR [Concomitant]
     Active Substance: ATORVASTATIN CALCIUM
  16. TRAMADOL HYDROCHLORIDE. [Concomitant]
     Active Substance: TRAMADOL HYDROCHLORIDE
  17. ONDANSETRON [Concomitant]
     Active Substance: ONDANSETRON
  18. XYREM [Suspect]
     Active Substance: SODIUM OXYBATE
     Dosage: DOSE ADJUSTMENT
     Route: 048
     Dates: start: 201404, end: 2016
  19. RESTASIS [Concomitant]
     Active Substance: CYCLOSPORINE
  20. PROLIA [Concomitant]
     Active Substance: DENOSUMAB
  21. CALCIUM [Concomitant]
     Active Substance: CALCIUM
  22. CYTOMEL [Concomitant]
     Active Substance: LIOTHYRONINE SODIUM
  23. NABUMETONE. [Concomitant]
     Active Substance: NABUMETONE
  24. PHENOBARBITAL. [Concomitant]
     Active Substance: PHENOBARBITAL
  25. AZASITE [Concomitant]
     Active Substance: AZITHROMYCIN MONOHYDRATE
  26. PROPRANOLOL [Concomitant]
     Active Substance: PROPRANOLOL HYDROCHLORIDE
  27. LAMOTRIGINE. [Concomitant]
     Active Substance: LAMOTRIGINE
  28. GABAPENTIN. [Concomitant]
     Active Substance: GABAPENTIN
  29. DICLOFENAC [Concomitant]
     Active Substance: DICLOFENAC
  30. CODEINE SULFATE. [Concomitant]
     Active Substance: CODEINE SULFATE
  31. DESONIDE. [Concomitant]
     Active Substance: DESONIDE
  32. FOLATE [Concomitant]
     Active Substance: FOLATE SODIUM
  33. LIDOCAINE. [Concomitant]
     Active Substance: LIDOCAINE
  34. PREVIDENT [Concomitant]
     Active Substance: SODIUM FLUORIDE
  35. FAMOTIDINE. [Concomitant]
     Active Substance: FAMOTIDINE
  36. HYALGAN [Concomitant]
     Active Substance: HYALURONATE SODIUM
  37. PREVACID [Concomitant]
     Active Substance: LANSOPRAZOLE
  38. MOMETASONE FUROATE. [Concomitant]
     Active Substance: MOMETASONE FUROATE
  39. ERGOCALCIFEROL. [Concomitant]
     Active Substance: ERGOCALCIFEROL

REACTIONS (7)
  - Wound infection [Unknown]
  - Wrist fracture [Unknown]
  - Ligament rupture [Unknown]
  - Visual impairment [Not Recovered/Not Resolved]
  - Road traffic accident [Unknown]
  - Joint injury [Unknown]
  - Muscle spasms [Unknown]
